FAERS Safety Report 8976475 (Version 1)
Quarter: 2012Q4

REPORT INFORMATION
  Report Type: 
  Country: FR (occurrence: FR)
  Receive Date: 20121220
  Receipt Date: 20121220
  Transmission Date: 20130627
  Serious: Yes (Death, Hospitalization, Other)
  Sender: FDA-Public Use
  Company Number: PHHY2012FR116851

PATIENT
  Age: 59 Year
  Sex: Male

DRUGS (8)
  1. ZOMETA [Suspect]
     Indication: HYPERCALCAEMIA OF MALIGNANCY
     Dosage: 4mg/100ml
     Dates: start: 20120911, end: 20120911
  2. PARACETAMOL [Concomitant]
     Dosage: 1 g, TID
     Route: 048
  3. FORLAX [Concomitant]
     Dosage: 4 g, UNK
     Route: 048
  4. OXYCONTIN LP [Concomitant]
     Dosage: 10 mg, QD
  5. STILNOX [Concomitant]
     Dosage: 10 mg, QD
     Route: 048
  6. SERESTA [Concomitant]
     Dosage: 35 mg, QD
     Route: 048
  7. LEVOTHYROX [Concomitant]
     Dosage: 150 ug, QD
     Route: 048
  8. EUPANTOL [Concomitant]
     Dosage: 40 mg, QD
     Route: 048

REACTIONS (3)
  - Death [Fatal]
  - Thrombocytopenia [Unknown]
  - Malignant neoplasm progression [Unknown]
